APPROVED DRUG PRODUCT: KETAMINE HYDROCHLORIDE
Active Ingredient: KETAMINE HYDROCHLORIDE
Strength: EQ 100MG BASE/ML
Dosage Form/Route: INJECTABLE;INJECTION
Application: A216809 | Product #003 | TE Code: AP
Applicant: GLAND PHARMA LTD
Approved: Jan 24, 2023 | RLD: No | RS: No | Type: RX